FAERS Safety Report 4823895-6 (Version None)
Quarter: 2005Q4

REPORT INFORMATION
  Report Type: 
  Country: None (occurrence: None)
  Receive Date: 20051107
  Receipt Date: 20051024
  Transmission Date: 20060501
  Serious: Yes (Hospitalization)
  Sender: FDA-Public Use
  Company Number: 2005BI009185

PATIENT
  Age: 37 Year
  Sex: Female

DRUGS (4)
  1. AVONEX [Suspect]
     Indication: MULTIPLE SCLEROSIS
     Dosage: 30 U G; QW; IM
     Route: 030
     Dates: start: 19980401, end: 19990501
  2. AVONEX [Suspect]
     Indication: MULTIPLE SCLEROSIS
     Dosage: 30 UG; QW; IM
     Route: 030
     Dates: start: 20041101
  3. MIDRIN [Concomitant]
  4. FIORINAL [Concomitant]

REACTIONS (2)
  - BIOPSY BREAST [None]
  - PAIN [None]
